FAERS Safety Report 14941038 (Version 2)
Quarter: 2018Q2

REPORT INFORMATION
  Report Type: Spontaneous
  Country: PT (occurrence: PT)
  Receive Date: 20180525
  Receipt Date: 20180604
  Transmission Date: 20180711
  Serious: Yes (Other)
  Sender: FDA-Public Use
  Company Number: PT-009507513-1805PRT011129

PATIENT
  Age: 56 Year
  Sex: Male
  Weight: 64 kg

DRUGS (4)
  1. PROPOFOL. [Suspect]
     Active Substance: PROPOFOL
  2. FENTANYL. [Suspect]
     Active Substance: FENTANYL
     Indication: INDUCTION OF ANAESTHESIA
  3. HYDROCHLOROTHIAZIDE (+) OLMESARTAN MEDOXOMIL [Concomitant]
     Indication: HYPERTENSION
  4. ESMERON [Suspect]
     Active Substance: ROCURONIUM BROMIDE
     Dosage: UNK

REACTIONS (3)
  - Airway complication of anaesthesia [Unknown]
  - Anaesthetic complication [Unknown]
  - Endotracheal intubation complication [Unknown]
